FAERS Safety Report 6272329-6 (Version None)
Quarter: 2009Q3

REPORT INFORMATION
  Report Type: 
  Country: None (occurrence: None)
  Receive Date: 20090717
  Receipt Date: 20090708
  Transmission Date: 20100115
  Serious: No
  Sender: FDA-Public Use
  Company Number: US-ROCHE-643360

PATIENT
  Sex: Female

DRUGS (2)
  1. ISOTRETINOIN [Suspect]
     Indication: DRUG USE FOR UNKNOWN INDICATION
     Route: 065
     Dates: start: 20081001, end: 20090101
  2. ISOTRETINOIN [Suspect]
     Dosage: ON MONDAY, WEDNESDAY AND FRIDAY.
     Route: 065
     Dates: start: 20090101, end: 20090401

REACTIONS (2)
  - NO ADVERSE EVENT [None]
  - PREGNANCY [None]
